FAERS Safety Report 11569391 (Version 1)
Quarter: 2015Q3

REPORT INFORMATION
  Report Type: Spontaneous
  Country: US (occurrence: None)
  Receive Date: 20150928
  Receipt Date: 20150928
  Transmission Date: 20151125
  Serious: No
  Sender: FDA-Public Use
  Company Number: None

PATIENT
  Age: 63 Year
  Sex: Female
  Weight: 71.67 kg

DRUGS (3)
  1. MULTI VITAMIN B12 [Concomitant]
  2. LATISSE [Suspect]
     Active Substance: BIMATOPROST
     Indication: EYELASH THICKENING
     Dosage: APPLY DAILY, APPLIED TO A SURFACE USUALLY THE SKIN
     Dates: start: 20150701, end: 20150715
  3. VITAMIN D3 [Concomitant]
     Active Substance: CHOLECALCIFEROL

REACTIONS (1)
  - Madarosis [None]

NARRATIVE: CASE EVENT DATE: 20150715
